FAERS Safety Report 12676779 (Version 2)
Quarter: 2016Q3

REPORT INFORMATION
  Report Type: Spontaneous
  Country: BR (occurrence: BR)
  Receive Date: 20160823
  Receipt Date: 20160829
  Transmission Date: 20161109
  Serious: Yes (Death, Hospitalization, Other)
  Sender: FDA-Public Use
  Company Number: BR-ALEXION PHARMACEUTICALS INC-A201606110

PATIENT
  Sex: Female

DRUGS (1)
  1. SOLIRIS [Suspect]
     Active Substance: ECULIZUMAB
     Indication: PAROXYSMAL NOCTURNAL HAEMOGLOBINURIA
     Dosage: UNK
     Route: 042
     Dates: end: 20111205

REACTIONS (8)
  - Gastric haemorrhage [Fatal]
  - Infection [Unknown]
  - Facial pain [Unknown]
  - Haemoglobinuria [Unknown]
  - Hyperglycaemia [Unknown]
  - Cellulitis [Unknown]
  - Haemolysis [Unknown]
  - Headache [Unknown]

NARRATIVE: CASE EVENT DATE: 201204
